FAERS Safety Report 21953552 (Version 1)
Quarter: 2023Q1

REPORT INFORMATION
  Report Type: Report from Study
  Country: US (occurrence: US)
  Receive Date: 20230204
  Receipt Date: 20230204
  Transmission Date: 20230418
  Serious: No
  Sender: FDA-Public Use
  Company Number: US-ACORDA-ACO_173171_2022

PATIENT
  Sex: Male

DRUGS (1)
  1. AMPYRA [Suspect]
     Active Substance: DALFAMPRIDINE
     Indication: Multiple sclerosis
     Dosage: 20 MILLIGRAM, BID
     Route: 048
     Dates: start: 20210909

REACTIONS (3)
  - Multiple sclerosis [Unknown]
  - Off label use [Unknown]
  - Multiple sclerosis relapse [Unknown]
